FAERS Safety Report 8424377 (Version 3)
Quarter: 2014Q3

REPORT INFORMATION
  Report Type: Spontaneous
  Country: TW (occurrence: TW)
  Receive Date: 20120224
  Receipt Date: 20140729
  Transmission Date: 20150326
  Serious: Yes (Other)
  Sender: FDA-Public Use
  Company Number: TW-RANBAXY-2012RR-52854

PATIENT
  Age: 62 Year
  Sex: Female

DRUGS (6)
  1. PALIPERIDONE [Suspect]
     Active Substance: PALIPERIDONE
     Indication: SCHIZOPHRENIA
     Dosage: 3 MG/DAY
     Route: 065
  2. RISPERIDONE. [Suspect]
     Active Substance: RISPERIDONE
     Indication: SCHIZOPHRENIA
     Dosage: 2 MG/DAY
     Route: 065
     Dates: start: 2004
  3. VALPROIC ACID. [Concomitant]
     Active Substance: VALPROIC ACID
     Indication: MANIA
     Dosage: 1000 MG/DAY
     Route: 065
  4. RISPERIDONE. [Concomitant]
     Active Substance: RISPERIDONE
     Indication: SCHIZOPHRENIA
     Dosage: 2 MG/DAY
     Route: 065
  5. RISPERIDONE. [Concomitant]
     Active Substance: RISPERIDONE
     Indication: SCHIZOPHRENIA
     Dosage: GRADUAL TITRATION TO 4 MG/DAY
     Route: 065
  6. VALPROIC ACID. [Concomitant]
     Active Substance: VALPROIC ACID
     Indication: SCHIZOPHRENIA

REACTIONS (2)
  - Drug withdrawal syndrome [Recovered/Resolved]
  - Mania [Recovered/Resolved]
